FAERS Safety Report 24379612 (Version 1)
Quarter: 2024Q3

REPORT INFORMATION
  Report Type: Spontaneous
  Country: DE (occurrence: DE)
  Receive Date: 20240930
  Receipt Date: 20240930
  Transmission Date: 20241017
  Serious: Yes (Other)
  Sender: GLAXOSMITHKLINE
  Company Number: DE-GSKCCFEMEA-Case-02072350_AE-88095

PATIENT

DRUGS (1)
  1. FLUTICASONE PROPIONATE\SALMETEROL XINAFOATE [Suspect]
     Active Substance: FLUTICASONE PROPIONATE\SALMETEROL XINAFOATE
     Indication: Product used for unknown indication
     Dosage: 25/125

REACTIONS (8)
  - Cataract [Unknown]
  - Diabetes mellitus [Unknown]
  - Abdominal distension [Unknown]
  - Fungal infection [Unknown]
  - Throat tightness [Unknown]
  - Dysphagia [Unknown]
  - Cardiac disorder [Unknown]
  - Blood glucose increased [Unknown]
